FAERS Safety Report 23471925 (Version 1)
Quarter: 2024Q1

REPORT INFORMATION
  Report Type: Spontaneous
  Country: IR (occurrence: IR)
  Receive Date: 20240202
  Receipt Date: 20240202
  Transmission Date: 20240410
  Serious: Yes (Death, Life-Threatening, Hospitalization, Other)
  Sender: FDA-Public Use
  Company Number: IR-PFIZER INC-PV202400013237

PATIENT
  Age: 32 Year
  Sex: Female
  Weight: 65 kg

DRUGS (3)
  1. MEROPENEM [Suspect]
     Active Substance: MEROPENEM
     Indication: Septic shock
     Dosage: UNK
  2. LINEZOLID [Suspect]
     Active Substance: LINEZOLID
     Indication: Septic shock
     Dosage: UNK
  3. COLISTIN [Suspect]
     Active Substance: COLISTIN
     Indication: Septic shock
     Dosage: UNK

REACTIONS (1)
  - Drug resistance [Fatal]
